FAERS Safety Report 18407010 (Version 6)
Quarter: 2020Q4

REPORT INFORMATION
  Report Type: Spontaneous
  Country: US (occurrence: US)
  Receive Date: 20201020
  Receipt Date: 20201218
  Transmission Date: 20210114
  Serious: No
  Sender: FDA-Public Use
  Company Number: US-PFIZER INC-2020401405

PATIENT
  Age: 78 Year
  Sex: Male
  Weight: 78.02 kg

DRUGS (2)
  1. VFEND [Suspect]
     Active Substance: VORICONAZOLE
     Indication: FUNGAL INFECTION
     Dosage: 300 MG, 2X/DAY (300 MG IN THE MORNING AND 300 MG IN THE EVENING)
     Route: 048
     Dates: start: 20200710
  2. VFEND [Suspect]
     Active Substance: VORICONAZOLE
     Indication: ASPERGILLUS INFECTION
     Dosage: 100 MG, 2X/DAY (50 MG TABLET TAKE 2 TABLETS EVERY 12 HOURS)
     Route: 048

REACTIONS (3)
  - Intentional product misuse [Unknown]
  - Product dispensing error [Unknown]
  - Weight increased [Unknown]
